FAERS Safety Report 19211998 (Version 1)
Quarter: 2021Q2

REPORT INFORMATION
  Report Type: Spontaneous
  Country: IT (occurrence: IT)
  Receive Date: 20210504
  Receipt Date: 20210504
  Transmission Date: 20210717
  Serious: Yes (Other)
  Sender: FDA-Public Use
  Company Number: IT-BAUSCH-BL-2021-014495

PATIENT
  Age: 61 Year
  Sex: Female

DRUGS (3)
  1. DEXAMETHASONE. [Suspect]
     Active Substance: DEXAMETHASONE
     Indication: LIGHT CHAIN DISEASE
     Route: 065
  2. DEXAMETHASONE. [Suspect]
     Active Substance: DEXAMETHASONE
     Indication: PRODUCT USE IN UNAPPROVED INDICATION
  3. VELCADE [Suspect]
     Active Substance: BORTEZOMIB
     Indication: LIGHT CHAIN DISEASE
     Route: 065

REACTIONS (4)
  - Peripheral sensory neuropathy [Unknown]
  - Product use in unapproved indication [Unknown]
  - Hyperglycaemia [Unknown]
  - Off label use [Unknown]
